FAERS Safety Report 24293278 (Version 1)
Quarter: 2024Q3

REPORT INFORMATION
  Report Type: Spontaneous
  Country: US (occurrence: None)
  Receive Date: 20240906
  Receipt Date: 20240906
  Transmission Date: 20241016
  Serious: No
  Sender: DOMPE FARMACEUTICI
  Company Number: US-FARMAPROD-202308-202312-3764

PATIENT
  Sex: Female

DRUGS (14)
  1. OXERVATE [Suspect]
     Active Substance: CENEGERMIN-BKBJ
     Indication: Neurotrophic keratopathy
     Route: 047
     Dates: start: 20231030
  2. ASPIRIN [Concomitant]
     Active Substance: ASPIRIN
  3. ARMOUR THYROID [Concomitant]
     Active Substance: THYROID, PORCINE
  4. BEET ROOT-TART CHERRY [Concomitant]
  5. VITAMIN D3 [Concomitant]
     Active Substance: CHOLECALCIFEROL
  6. VITAMIN C [Concomitant]
     Active Substance: ASCORBIC ACID
  7. PROBIOTIC 10B CELL [Concomitant]
  8. OMEGA 3 [Concomitant]
     Active Substance: CAPSAICIN
     Dosage: 684-1200MG
  9. CEQUA [Concomitant]
     Active Substance: CYCLOSPORINE
  10. DIETARY SUPPLEMENT\RESVERATROL [Concomitant]
     Active Substance: DIETARY SUPPLEMENT\RESVERATROL
  11. VITAMINS [Concomitant]
     Active Substance: VITAMINS
  12. LOSARTAN POTASSIUM [Concomitant]
     Active Substance: LOSARTAN POTASSIUM
  13. COENZYME Q10 [Concomitant]
     Active Substance: DIETARY SUPPLEMENT\UBIDECARENONE
  14. ZIOPTAN [Concomitant]
     Active Substance: TAFLUPROST

REACTIONS (1)
  - Intentional product misuse [Unknown]
